FAERS Safety Report 16841071 (Version 3)
Quarter: 2019Q4

REPORT INFORMATION
  Report Type: Spontaneous
  Country: US (occurrence: US)
  Receive Date: 20190923
  Receipt Date: 20191119
  Transmission Date: 20200122
  Serious: No
  Sender: FDA-Public Use
  Company Number: US-SA-2019SA257127

PATIENT
  Age: 66 Year
  Sex: Female

DRUGS (1)
  1. DUPIXENT [Suspect]
     Active Substance: DUPILUMAB
     Indication: DERMATITIS ATOPIC
     Dosage: 300 MG, QOW
     Route: 058
     Dates: start: 20190509

REACTIONS (8)
  - Eyelid irritation [Unknown]
  - Sinus operation [Unknown]
  - Eyelids pruritus [Unknown]
  - Arthritis [Unknown]
  - Swelling of eyelid [Unknown]
  - Eye swelling [Unknown]
  - Ocular discomfort [Unknown]
  - Lacrimation increased [Unknown]

NARRATIVE: CASE EVENT DATE: 2019
